FAERS Safety Report 4484946-4 (Version None)
Quarter: 2004Q3

REPORT INFORMATION
  Report Type: 
  Country: None (occurrence: None)
  Receive Date: 20040921
  Receipt Date: 20030723
  Transmission Date: 20050211
  Serious: Yes (Hospitalization, Other)
  Sender: FDA-Public Use
  Company Number: 163-20785-03070551

PATIENT
  Age: 58 Year
  Sex: Male
  Weight: 93.441 kg

DRUGS (4)
  1. THALOMID [Suspect]
     Indication: NON-SMALL CELL LUNG CANCER
     Dosage: 400 MG, DAILY, ORAL
     Route: 048
     Dates: start: 20030628, end: 20030707
  2. IRINOTECAN (IRINOTECAN) [Suspect]
     Indication: NON-SMALL CELL LUNG CANCER
     Dosage: 269 MG, DAILY, INTRAVENOUS
     Route: 042
     Dates: start: 20030626
  3. IRINOTECAN (IRINOTECAN) [Suspect]
     Indication: NON-SMALL CELL LUNG CANCER
     Dosage: 269 MG, DAILY, INTRAVENOUS
     Route: 042
     Dates: start: 20030703
  4. CELECOXIB (CELECOXIB) [Suspect]
     Indication: NON-SMALL CELL LUNG CANCER
     Dosage: 400 MG, BID
     Dates: start: 20030101

REACTIONS (5)
  - DEEP VEIN THROMBOSIS [None]
  - DIARRHOEA [None]
  - NAUSEA [None]
  - OEDEMA PERIPHERAL [None]
  - PAIN IN EXTREMITY [None]
